FAERS Safety Report 5484454-8 (Version None)
Quarter: 2007Q4

REPORT INFORMATION
  Report Type: 
  Country: None (occurrence: None)
  Receive Date: 20071010
  Receipt Date: 20070919
  Transmission Date: 20080405
  Serious: Yes (Hospitalization)
  Sender: FDA-Public Use
  Company Number: 20070208 /

PATIENT
  Age: 90 Year
  Sex: Female

DRUGS (1)
  1. VENOFER [Suspect]
     Indication: BLOOD ERYTHROPOIETIN DECREASED
     Dosage: 100 MG X 1 INTRAVENOUS DRIP
     Route: 041
     Dates: start: 20070430, end: 20070430

REACTIONS (1)
  - DIARRHOEA [None]
